FAERS Safety Report 21813994 (Version 1)
Quarter: 2023Q1

REPORT INFORMATION
  Report Type: Spontaneous
  Country: IN (occurrence: IN)
  Receive Date: 20230104
  Receipt Date: 20230104
  Transmission Date: 20230418
  Serious: Yes (Other)
  Sender: FDA-Public Use
  Company Number: IN-SUN PHARMACEUTICAL INDUSTRIES LTD-2022R1-371426

PATIENT
  Age: 60 Year
  Sex: Male

DRUGS (1)
  1. PENTAZOCINE [Suspect]
     Active Substance: PENTAZOCINE
     Indication: Arthralgia
     Dosage: UNK
     Route: 065

REACTIONS (9)
  - Fibromyalgia [Unknown]
  - Withdrawal syndrome [Unknown]
  - Drug dependence [Unknown]
  - Tachycardia [Unknown]
  - Anxiety [Unknown]
  - Restlessness [Not Recovered/Not Resolved]
  - Nausea [Unknown]
  - Vomiting [Unknown]
  - Hyperhidrosis [Unknown]
